FAERS Safety Report 9406533 (Version 1)
Quarter: 2013Q3

REPORT INFORMATION
  Report Type: Report from Study
  Country: GR (occurrence: GR)
  Receive Date: 20130718
  Receipt Date: 20130718
  Transmission Date: 20140515
  Serious: Yes (Other)
  Sender: FDA-Public Use
  Company Number: GR-ROCHE-1248815

PATIENT
  Age: 44 Year
  Sex: Female

DRUGS (4)
  1. TOCILIZUMAB [Suspect]
     Indication: RHEUMATOID ARTHRITIS
     Route: 042
     Dates: start: 20120516
  2. METHOTREXATE [Suspect]
     Indication: RHEUMATOID ARTHRITIS
     Route: 048
     Dates: start: 20111101
  3. FERRO SANOL [Concomitant]
     Indication: IRON DEFICIENCY ANAEMIA
     Route: 065
  4. FOLIC ACID [Concomitant]
     Indication: RHEUMATOID ARTHRITIS
     Route: 048
     Dates: start: 20111101

REACTIONS (2)
  - Allergy to arthropod sting [Recovered/Resolved]
  - Neutrophil count decreased [Recovered/Resolved]
